FAERS Safety Report 7580201-4 (Version None)
Quarter: 2011Q2

REPORT INFORMATION
  Report Type: 
  Country: None (occurrence: None)
  Receive Date: 20110629
  Receipt Date: 20110617
  Transmission Date: 20111010
  Serious: Yes (Hospitalization, Other)
  Sender: FDA-Public Use
  Company Number: US-BAYER-2011-011204

PATIENT
  Age: 25 Year
  Sex: Female
  Weight: 69.388 kg

DRUGS (5)
  1. YASMIN [Suspect]
     Indication: PRODUCT USED FOR UNKNOWN INDICATION
     Dates: start: 20050101, end: 20070101
  2. BENZAC [Concomitant]
  3. NASONEX [Concomitant]
  4. CYCLOBENAZPRINE [Concomitant]
  5. OMEPRAZOLE [Concomitant]

REACTIONS (2)
  - PAIN [None]
  - DEEP VEIN THROMBOSIS [None]
